FAERS Safety Report 8189253-4 (Version None)
Quarter: 2012Q1

REPORT INFORMATION
  Report Type: 
  Country: None (occurrence: None)
  Receive Date: 20120307
  Receipt Date: 20120224
  Transmission Date: 20120608
  Serious: Yes (Hospitalization, Other)
  Sender: FDA-Public Use
  Company Number: US-ELI_LILLY_AND_COMPANY-US201201006264

PATIENT
  Age: 80 Year
  Sex: Female

DRUGS (4)
  1. FORTEO [Suspect]
     Indication: OSTEOPOROSIS
     Dosage: UNK UNK, UNKNOWN
     Route: 065
  2. OXYGEN [Concomitant]
     Dosage: UNK
  3. BETA BLOCKING AGENTS [Concomitant]
  4. DIGOXIN [Concomitant]

REACTIONS (1)
  - TOXICITY TO VARIOUS AGENTS [None]
